FAERS Safety Report 21544524 (Version 1)
Quarter: 2022Q4

REPORT INFORMATION
  Report Type: Report from Study
  Country: LV (occurrence: LV)
  Receive Date: 20221102
  Receipt Date: 20221102
  Transmission Date: 20230113
  Serious: Yes (Death, Hospitalization, Other)
  Sender: FDA-Public Use
  Company Number: LV-BoehringerIngelheim-2022-BI-200300

PATIENT

DRUGS (1)
  1. DABIGATRAN [Suspect]
     Active Substance: DABIGATRAN
     Indication: Atrial fibrillation
     Route: 048

REACTIONS (2)
  - Haemorrhage intracranial [Fatal]
  - Ischaemic stroke [Unknown]
